FAERS Safety Report 11702151 (Version 1)
Quarter: 2015Q4

REPORT INFORMATION
  Report Type: Spontaneous
  Country: US (occurrence: US)
  Receive Date: 20151105
  Receipt Date: 20151105
  Transmission Date: 20160304
  Serious: No
  Sender: FDA-Public Use
  Company Number: PHEH2015US022462

PATIENT
  Sex: Male

DRUGS (1)
  1. TRILEPTAL [Suspect]
     Active Substance: OXCARBAZEPINE
     Indication: COMPLEX PARTIAL SEIZURES
     Dosage: 300 MG, UNK
     Route: 065

REACTIONS (4)
  - Sleep terror [Unknown]
  - Abnormal behaviour [Unknown]
  - Seizure [Unknown]
  - Electroencephalogram abnormal [Unknown]
